FAERS Safety Report 20211900 (Version 1)
Quarter: 2021Q4

REPORT INFORMATION
  Report Type: Spontaneous
  Country: US (occurrence: None)
  Receive Date: 20211221
  Receipt Date: 20211221
  Transmission Date: 20220303
  Serious: Yes (Hospitalization)
  Sender: FDA-Public Use
  Company Number: None

PATIENT
  Sex: Male

DRUGS (5)
  1. ABIRATERONE ACETATE [Suspect]
     Active Substance: ABIRATERONE ACETATE
     Indication: Prostate cancer
     Dosage: FREQUENCY : DAILY;?
     Route: 048
     Dates: start: 20210519
  2. BICALUTAMIDE [Suspect]
     Active Substance: BICALUTAMIDE
  3. CALCIUM/D3 CHW 600-800 [Concomitant]
  4. LUPRON DEPOT [Concomitant]
     Active Substance: LEUPROLIDE ACETATE
  5. VITAMIN D CAP 50000UNT [Concomitant]

REACTIONS (1)
  - Therapy interrupted [None]
